FAERS Safety Report 4586769-4 (Version None)
Quarter: 2005Q1

REPORT INFORMATION
  Report Type: 
  Country: None (occurrence: None)
  Receive Date: 20050214
  Receipt Date: 20050131
  Transmission Date: 20050727
  Serious: Yes (Hospitalization)
  Sender: FDA-Public Use
  Company Number: 2004099093

PATIENT
  Age: 72 Year
  Sex: Female
  Weight: 58.9676 kg

DRUGS (6)
  1. CELEBREX [Suspect]
     Indication: OSTEOARTHRITIS
     Dosage: 200 MG (200 MG, 1 IN 1 D), ORAL
     Route: 048
     Dates: start: 20040924, end: 20041214
  2. BELLADENAL (BELLADONNA EXTRACT, PHENOBARBITAL) [Concomitant]
  3. FELODIPINE [Concomitant]
  4. NADOLOL [Concomitant]
  5. CAPTOPRIL [Concomitant]
  6. ATORVASTATIN (ATORVASTATIN) [Concomitant]

REACTIONS (2)
  - DIARRHOEA [None]
  - RECTAL HAEMORRHAGE [None]
